FAERS Safety Report 23992569 (Version 1)
Quarter: 2024Q2

REPORT INFORMATION
  Report Type: Spontaneous
  Country: US (occurrence: US)
  Receive Date: 20240620
  Receipt Date: 20240620
  Transmission Date: 20240716
  Serious: No
  Sender: FDA-Public Use
  Company Number: US-AUROBINDO-AUR-APL-2023-052801

PATIENT
  Age: 9 Year
  Sex: Male
  Weight: 18.143 kg

DRUGS (1)
  1. CLINDAMYCIN PALMITATE HYDROCHLORIDE [Suspect]
     Active Substance: CLINDAMYCIN PALMITATE HYDROCHLORIDE
     Indication: Streptococcal infection
     Dosage: 8 MILLILITER, 3 TIMES A DAY
     Route: 048
     Dates: start: 20230728

REACTIONS (7)
  - Pyrexia [Recovering/Resolving]
  - Diarrhoea [Recovering/Resolving]
  - Vomiting [Recovered/Resolved]
  - Nausea [Recovering/Resolving]
  - Product odour abnormal [Unknown]
  - Product taste abnormal [Unknown]
  - Drug ineffective [Unknown]
